FAERS Safety Report 5525442-2 (Version None)
Quarter: 2007Q4

REPORT INFORMATION
  Report Type: 
  Country: None (occurrence: None)
  Receive Date: 20071126
  Receipt Date: 20071116
  Transmission Date: 20080405
  Serious: Yes (Death)
  Sender: FDA-Public Use
  Company Number: B0421098A

PATIENT
  Age: 23 Year
  Sex: Male
  Weight: 106 kg

DRUGS (9)
  1. PIRITON [Suspect]
     Indication: DRUG USE FOR UNKNOWN INDICATION
     Route: 048
     Dates: start: 20051230
  2. CYCLIZINE [Suspect]
     Indication: DRUG USE FOR UNKNOWN INDICATION
     Route: 065
  3. DUROGESIC PATCH [Suspect]
     Indication: CROHN'S DISEASE
     Dosage: 100UGH SEE DOSAGE TEXT
     Route: 062
     Dates: start: 20051225
  4. TEMAZEPAM [Suspect]
     Indication: DRUG USE FOR UNKNOWN INDICATION
     Dosage: 20MG UNKNOWN
     Route: 065
     Dates: start: 20051230
  5. DIAZEPAM [Concomitant]
     Dates: start: 20051028
  6. ORAMORPH SR [Concomitant]
     Dosage: 20ML PER DAY
     Dates: start: 20051223
  7. PREDFOAM [Concomitant]
     Dates: start: 20041223
  8. TRAMADOL HCL [Concomitant]
     Route: 030
  9. PARACETAMOL [Concomitant]

REACTIONS (15)
  - AMNESIA [None]
  - ANXIETY [None]
  - CHILLS [None]
  - DIZZINESS [None]
  - DRUG TOXICITY [None]
  - DRY MOUTH [None]
  - DYSARTHRIA [None]
  - DYSPNOEA [None]
  - HEADACHE [None]
  - HYPERSENSITIVITY [None]
  - MUSCULOSKELETAL STIFFNESS [None]
  - PHOTOPHOBIA [None]
  - PNEUMONIA [None]
  - PRURITUS [None]
  - VISION BLURRED [None]
